FAERS Safety Report 17745430 (Version 1)
Quarter: 2020Q2

REPORT INFORMATION
  Report Type: Spontaneous
  Country: US (occurrence: US)
  Receive Date: 20200505
  Receipt Date: 20200505
  Transmission Date: 20200714
  Serious: No
  Sender: FDA-Public Use
  Company Number: US-PERRIGO-20US002026

PATIENT
  Age: 68 Year
  Sex: Female
  Weight: 58.96 kg

DRUGS (3)
  1. ESTRADIOL. [Suspect]
     Active Substance: ESTRADIOL
     Indication: BLOOD OESTROGEN DECREASED
     Dosage: UNK
     Route: 067
     Dates: start: 201905, end: 201905
  2. ESTRADIOL. [Suspect]
     Active Substance: ESTRADIOL
     Indication: VULVOVAGINAL DRYNESS
     Dosage: UNK
     Route: 067
     Dates: start: 201905, end: 201905
  3. SYNTHROID [Concomitant]
     Active Substance: LEVOTHYROXINE SODIUM
     Indication: PRODUCT USED FOR UNKNOWN INDICATION
     Dosage: 50MCG, QD FOR 5 DAYS
     Route: 065

REACTIONS (1)
  - Vulvovaginal inflammation [Recovered/Resolved]

NARRATIVE: CASE EVENT DATE: 201905
